FAERS Safety Report 7064770-9 (Version None)
Quarter: 2010Q4

REPORT INFORMATION
  Report Type: 
  Country: None (occurrence: None)
  Receive Date: 20101027
  Receipt Date: 20101021
  Transmission Date: 20110411
  Serious: Yes (Death)
  Sender: FDA-Public Use
  Company Number: US-SANOFI-AVENTIS-2010SA065051

PATIENT
  Age: 88 Year
  Sex: Male

DRUGS (2)
  1. PLAVIX [Suspect]
     Route: 048
  2. SINEMET [Concomitant]

REACTIONS (1)
  - DEATH [None]
